FAERS Safety Report 23980771 (Version 1)
Quarter: 2024Q2

REPORT INFORMATION
  Report Type: Spontaneous
  Country: US (occurrence: US)
  Receive Date: 20240617
  Receipt Date: 20240617
  Transmission Date: 20240716
  Serious: No
  Sender: FDA-Public Use
  Company Number: US-AMGEN-USASP2024118045

PATIENT
  Age: 63 Year
  Sex: Male

DRUGS (6)
  1. PREDNISONE [Suspect]
     Active Substance: PREDNISONE
     Indication: Encapsulating peritoneal sclerosis
     Dosage: 10 MILLIGRAM, QD
     Route: 065
  2. TAMOXIFEN [Concomitant]
     Active Substance: TAMOXIFEN
     Indication: Encapsulating peritoneal sclerosis
     Dosage: 10 MILLIGRAM, TID
     Route: 065
  3. TAMOXIFEN [Concomitant]
     Active Substance: TAMOXIFEN
     Dosage: 1 MILLIGRAM, TID
     Route: 065
  4. TACROLIMUS [Concomitant]
     Active Substance: TACROLIMUS
     Indication: Encapsulating peritoneal sclerosis
     Dosage: 2 MILLIGRAM, QD
     Route: 065
  5. SIROLIMUS [Concomitant]
     Active Substance: SIROLIMUS
     Indication: Encapsulating peritoneal sclerosis
     Dosage: 1 MILLIGRAM, QD
     Route: 065
  6. SIROLIMUS [Concomitant]
     Active Substance: SIROLIMUS
     Dosage: 1 MILLIGRAM, QD
     Route: 065

REACTIONS (2)
  - Drug ineffective for unapproved indication [Unknown]
  - Off label use [Unknown]
